FAERS Safety Report 8023248-6 (Version None)
Quarter: 2012Q1

REPORT INFORMATION
  Report Type: 
  Country: None (occurrence: None)
  Receive Date: 20120104
  Receipt Date: 20111227
  Transmission Date: 20120608
  Serious: Yes (Other)
  Sender: FDA-Public Use
  Company Number: US-BAYER-2011-063196

PATIENT
  Age: 26 Year
  Sex: Female
  Weight: 95.238 kg

DRUGS (2)
  1. DROSPIRENONE AND ETHINYL ESTRADIOL [Suspect]
     Indication: ACNE
     Dosage: UNK
     Dates: start: 20081209, end: 20090901
  2. AVONEX [Concomitant]

REACTIONS (8)
  - GALLBLADDER INJURY [None]
  - GENERAL PHYSICAL HEALTH DETERIORATION [None]
  - INJURY [None]
  - CHOLECYSTITIS [None]
  - PAIN [None]
  - ANXIETY [None]
  - SCAR [None]
  - EMOTIONAL DISTRESS [None]
